FAERS Safety Report 6261005-1 (Version None)
Quarter: 2009Q3

REPORT INFORMATION
  Report Type: 
  Country: None (occurrence: None)
  Receive Date: 20090709
  Receipt Date: 20090701
  Transmission Date: 20100115
  Serious: Yes (Hospitalization)
  Sender: FDA-Public Use
  Company Number: US-BIOGENIDEC-2009BI018297

PATIENT
  Age: 60 Year
  Sex: Female

DRUGS (2)
  1. AVONEX [Suspect]
     Indication: MULTIPLE SCLEROSIS
     Route: 030
     Dates: start: 20060701
  2. ANESTHESIA [Concomitant]
     Indication: BLADDER OPERATION

REACTIONS (3)
  - ANAESTHETIC COMPLICATION [None]
  - CYSTOPEXY [None]
  - HEADACHE [None]
